FAERS Safety Report 4820659-4 (Version None)
Quarter: 2005Q4

REPORT INFORMATION
  Report Type: 
  Country: None (occurrence: None)
  Receive Date: 20051014
  Receipt Date: 20050701
  Transmission Date: 20060501
  Serious: No
  Sender: FDA-Public Use
  Company Number: 2005SP001700

PATIENT
  Age: 56 Year
  Sex: Female

DRUGS (2)
  1. LUNESTA [Suspect]
     Dosage: 3 MG; HS; ORAL; 3 MG; HS; ORAL
     Route: 048
     Dates: start: 20050101
  2. LUNESTA [Suspect]
     Dosage: 3 MG; HS; ORAL; 3 MG; HS; ORAL
     Route: 048
     Dates: start: 20050601

REACTIONS (2)
  - DRUG INEFFECTIVE [None]
  - MIDDLE INSOMNIA [None]
